FAERS Safety Report 6238653-8 (Version None)
Quarter: 2009Q2

REPORT INFORMATION
  Report Type: 
  Country: None (occurrence: None)
  Receive Date: 20090617
  Receipt Date: 20090617
  Transmission Date: 20091009
  Serious: No
  Sender: FDA-Public Use
  Company Number: None

PATIENT
  Age: 24 Year
  Sex: Male
  Weight: 99.7913 kg

DRUGS (1)
  1. ZICAM EXTREME CONGESTION RELIEF 0.05% ZICAM LLC [Suspect]
     Indication: NASAL CONGESTION
     Dosage: 1-2 PUMPS PER NOSTRIL 2X DAY NASAL
     Route: 045
     Dates: start: 20030101, end: 20050101

REACTIONS (1)
  - HYPOSMIA [None]
